FAERS Safety Report 4645483-7 (Version None)
Quarter: 2005Q2

REPORT INFORMATION
  Report Type: 
  Country: None (occurrence: None)
  Receive Date: 20050331
  Receipt Date: 20050128
  Transmission Date: 20051028
  Serious: Yes (Hospitalization)
  Sender: FDA-Public Use
  Company Number: 05P-163-0289066-00

PATIENT
  Age: 59 Year
  Sex: Female

DRUGS (8)
  1. HUMIRA [Suspect]
     Indication: RHEUMATOID ARTHRITIS
     Dosage: 40 MG, 1 IN 2 WK, SUBCUTANEOUS;  40 MG, 1 IN 1 WK, SUBCUTANEOUS
     Route: 058
     Dates: start: 20040101, end: 20040901
  2. HUMIRA [Suspect]
     Indication: RHEUMATOID ARTHRITIS
     Dosage: 40 MG, 1 IN 2 WK, SUBCUTANEOUS;  40 MG, 1 IN 1 WK, SUBCUTANEOUS
     Route: 058
     Dates: start: 20040901, end: 20050101
  3. MELOXICAM [Concomitant]
  4. FEXOFENADINE HYDROCHLORIDE [Concomitant]
  5. RISEDRONATE SODIUM [Concomitant]
  6. ESOMEPRAZOLE [Concomitant]
  7. LEXAPRO [Concomitant]
  8. PREDNISONE [Concomitant]

REACTIONS (3)
  - CHEST WALL PAIN [None]
  - FUNGAL TEST POSITIVE [None]
  - PNEUMONIA [None]
